FAERS Safety Report 6739882-7 (Version None)
Quarter: 2010Q2

REPORT INFORMATION
  Report Type: 
  Country: None (occurrence: None)
  Receive Date: 20100525
  Receipt Date: 20100517
  Transmission Date: 20101027
  Serious: Yes (Other)
  Sender: FDA-Public Use
  Company Number: US-PFIZER INC-2010062260

PATIENT
  Sex: Female
  Weight: 96.145 kg

DRUGS (3)
  1. CHANTIX [Suspect]
     Indication: SMOKING CESSATION THERAPY
     Dosage: 0.5 MG, 1X/DAY
     Dates: start: 20100401
  2. DEPO-PROVERA [Suspect]
     Dosage: UNK
  3. CLONAZEPAM [Concomitant]

REACTIONS (12)
  - ABDOMINAL PAIN [None]
  - ANXIETY [None]
  - CHEST DISCOMFORT [None]
  - CRYING [None]
  - DEPRESSED MOOD [None]
  - LOCAL SWELLING [None]
  - MOOD SWINGS [None]
  - PHARYNGEAL OEDEMA [None]
  - POLYMENORRHOEA [None]
  - RESTLESSNESS [None]
  - SWELLING FACE [None]
  - THROAT TIGHTNESS [None]
